FAERS Safety Report 4761172-2 (Version None)
Quarter: 2005Q3

REPORT INFORMATION
  Report Type: 
  Country: None (occurrence: None)
  Receive Date: 20050906
  Receipt Date: 20050725
  Transmission Date: 20060218
  Serious: Yes (Life-Threatening, Hospitalization)
  Sender: FDA-Public Use
  Company Number: US-BOEHRINGER INGELHEIM PHARMACEUTICALS, INC.-2005-BP-12599BP

PATIENT
  Sex: Female
  Weight: 105.69 kg

DRUGS (13)
  1. MOBIC [Suspect]
     Indication: BACK PAIN
     Route: 048
     Dates: start: 20050707, end: 20050720
  2. ASPIRIN [Concomitant]
  3. ACIPHEX [Concomitant]
     Indication: GASTRITIS
  4. CALCIUM WITH VITAMIN D [Concomitant]
  5. PRINIVIL [Concomitant]
  6. HYDROCHLOROTHIAZIDE [Concomitant]
  7. METFORMIN [Concomitant]
  8. DIOVAN [Concomitant]
     Dates: start: 20050707, end: 20050707
  9. DITROPAN [Concomitant]
  10. IMDUR [Concomitant]
  11. DURAGESIC-100 [Concomitant]
  12. NITROGLYCERIN [Concomitant]
     Indication: PAIN
  13. VITAMIN E [Concomitant]
     Dates: start: 20050707, end: 20050720

REACTIONS (13)
  - ABDOMINAL DISTENSION [None]
  - ABDOMINAL PAIN UPPER [None]
  - ANGINA PECTORIS [None]
  - BLOOD PRESSURE INCREASED [None]
  - CARDIAC ENZYMES INCREASED [None]
  - CHEST DISCOMFORT [None]
  - CHEST PAIN [None]
  - DRUG INEFFECTIVE [None]
  - DYSPEPSIA [None]
  - DYSPNOEA [None]
  - FLATULENCE [None]
  - MYOCARDIAL INFARCTION [None]
  - PHARYNX DISCOMFORT [None]
